FAERS Safety Report 9270960 (Version 2)
Quarter: 2014Q1

REPORT INFORMATION
  Report Type: Spontaneous
  Country: US (occurrence: US)
  Receive Date: 20130506
  Receipt Date: 20140203
  Transmission Date: 20141002
  Serious: Yes (Hospitalization)
  Sender: FDA-Public Use
  Company Number: US-AMGEN-USASP2013017990

PATIENT
  Age: 84 Year
  Sex: Female
  Weight: 57.14 kg

DRUGS (32)
  1. PROLIA [Suspect]
     Indication: OSTEOPOROSIS POSTMENOPAUSAL
     Dosage: 60 MG/ML, Q6MO
     Route: 058
     Dates: start: 20110608, end: 20111128
  2. PROLIA [Suspect]
     Route: 058
  3. FUROSEMIDE [Concomitant]
     Dosage: 20 MG, QD
     Route: 048
  4. TOPROL [Concomitant]
     Dosage: 50 MG, QD
  5. DICYCLOMINE HCL [Concomitant]
     Dosage: 10 MG, FOUR TABS/DAY QD
     Route: 048
  6. LIPITOR [Concomitant]
     Indication: BLOOD CHOLESTEROL INCREASED
     Dosage: 40 MG, 1 TAB AT BED TIME
  7. FLONASE [Concomitant]
     Dosage: 50 MUG, QD
     Route: 045
  8. RESTASIS [Concomitant]
     Dosage: 0.05 %, BID IN BOTH EYES
     Route: 047
  9. MULTIVITAMINS [Concomitant]
     Dosage: ONE TAB, QD
     Route: 048
  10. CALTRATE + VITAMIN D [Concomitant]
     Dosage: 600 MG, BID
     Route: 048
  11. POTASSIUM CHLORIDE [Concomitant]
     Dosage: UNK UNK, QD
     Route: 048
  12. ECOTRIN [Concomitant]
     Dosage: 81 MG, QD
     Route: 048
  13. VAGIFEM [Concomitant]
     Dosage: 10 MUG, Q2WK
     Route: 067
  14. GEMFIBROZIL [Concomitant]
     Dosage: 600 MG, BID
     Route: 048
  15. LUTEIN                             /01638501/ [Concomitant]
     Dosage: 6 MG, QD
     Route: 048
  16. CLONAZEPAM [Concomitant]
     Dosage: 0.5 MG, BID
  17. PLAQUENIL SULFATE [Concomitant]
     Dosage: 200 MG, BID
     Route: 048
  18. DIOVAN [Concomitant]
     Dosage: 160 MG, BID
  19. TRAZODONE HYDROCHLORIDE [Concomitant]
     Dosage: 50 MG, AY BED TIME
     Route: 048
  20. EVOXAC [Concomitant]
     Indication: DRY MOUTH
     Dosage: 30 MG, BID
     Route: 048
  21. CINNAMON                           /01647501/ [Concomitant]
     Dosage: 500 MG, BID
     Route: 048
  22. CEREFOLIN NAC [Concomitant]
     Dosage: UNK UNK, QD
  23. LUNESTA [Concomitant]
     Indication: SLEEP DISORDER
     Dosage: 3 MG, AS NECESSARY
  24. NEXIUM                             /01479302/ [Concomitant]
     Indication: REFLUX LARYNGITIS
     Dosage: 40 MG, BID
     Route: 048
  25. CITALOPRAM HYDROBROMIDE [Concomitant]
     Dosage: 10 MG, QD
     Route: 048
  26. CLOTRIMAZOLE [Concomitant]
     Dosage: 10 MG, QD, ONE TO FIVE TAB
  27. NITROSTAT [Concomitant]
     Indication: CHEST PAIN
     Dosage: 0.4 MG, AS NECESSARY, DO NOT EXCEED 3 TAB
     Route: 060
  28. NYSTATIN AND TRIAMCINOLONE [Concomitant]
     Dosage: UNK UNK, BID
  29. NAFTIN [Concomitant]
     Dosage: 1 %, BID
  30. COLAZAL [Concomitant]
     Dosage: 750 MG, BID
     Route: 048
  31. TRIAMCINOLONE ACETONIDE [Concomitant]
     Dosage: UNK UNK, BID
  32. CHOLESTYRAMINE LIGHT [Concomitant]
     Dosage: 4 G, AFTER DINNER AND BEFORE MEDS

REACTIONS (3)
  - Urinary retention [Unknown]
  - Eczema [Unknown]
  - Cystitis [Unknown]
